FAERS Safety Report 9981756 (Version 1)
Quarter: 2014Q1

REPORT INFORMATION
  Report Type: Report from Study
  Country: US (occurrence: US)
  Receive Date: 20140307
  Receipt Date: 20140307
  Transmission Date: 20141002
  Serious: No
  Sender: FDA-Public Use
  Company Number: US-ABBVIE-13P-163-1179321-00

PATIENT
  Age: 31 Year
  Sex: Female

DRUGS (7)
  1. HUMIRA [Suspect]
     Indication: COLITIS ULCERATIVE
     Dates: start: 20131031, end: 20131031
  2. HUMIRA [Suspect]
     Dosage: 80 MG
     Dates: start: 20131114, end: 20131114
  3. HUMIRA [Suspect]
  4. APRISO [Concomitant]
     Indication: COLITIS ULCERATIVE
  5. APRISO [Concomitant]
     Indication: ANTIINFLAMMATORY THERAPY
  6. UCERIS [Concomitant]
     Indication: COLITIS ULCERATIVE
  7. VITAMIN C [Concomitant]
     Indication: PRODUCT USED FOR UNKNOWN INDICATION
     Dates: start: 20131205

REACTIONS (4)
  - Haemorrhage [Recovered/Resolved]
  - Cough [Recovering/Resolving]
  - Rhinorrhoea [Recovering/Resolving]
  - Wheezing [Recovering/Resolving]
